FAERS Safety Report 5483113-5 (Version None)
Quarter: 2007Q4

REPORT INFORMATION
  Report Type: 
  Country: None (occurrence: None)
  Receive Date: 20071011
  Receipt Date: 20071002
  Transmission Date: 20080405
  Serious: Yes (Hospitalization)
  Sender: FDA-Public Use
  Company Number: IT-ABBOTT-07P-083-0419138-00

PATIENT
  Sex: Female

DRUGS (1)
  1. VECLAM [Suspect]
     Indication: PHARYNGITIS
     Route: 048
     Dates: start: 20070724, end: 20070731

REACTIONS (2)
  - FACE OEDEMA [None]
  - LIP OEDEMA [None]
